FAERS Safety Report 8609352 (Version 5)
Quarter: 2013Q1

REPORT INFORMATION
  Report Type: Spontaneous
  Country: US (occurrence: US)
  Receive Date: 20120612
  Receipt Date: 20130321
  Transmission Date: 20140127
  Serious: Yes (Life-Threatening, Hospitalization, Other)
  Sender: FDA-Public Use
  Company Number: US-AMGEN-USASP2012035598

PATIENT
  Age: 58 Year
  Sex: Female
  Weight: 107.3 kg

DRUGS (4)
  1. NEULASTA [Suspect]
     Indication: NEUTROPENIA
     Dosage: 6 MG, ONE TIME DOSE
     Route: 058
     Dates: start: 20120331, end: 20120509
  2. NEULASTA [Suspect]
     Indication: PROPHYLAXIS
  3. ETOPOSIDE [Concomitant]
     Indication: SMALL CELL LUNG CANCER
     Dosage: 213 MG, UNK
     Route: 042
     Dates: start: 20120307, end: 20120509
  4. CISPLATIN [Concomitant]
     Indication: SMALL CELL LUNG CANCER
     Dosage: 170 MG, UNK
     Route: 042
     Dates: start: 20120307, end: 20120509

REACTIONS (2)
  - Neutropenia [Recovered/Resolved]
  - Drug ineffective [Unknown]
